FAERS Safety Report 6440805-9 (Version None)
Quarter: 2009Q4

REPORT INFORMATION
  Report Type: 
  Country: None (occurrence: None)
  Receive Date: 20091116
  Receipt Date: 20091109
  Transmission Date: 20100525
  Serious: Yes (Hospitalization)
  Sender: FDA-Public Use
  Company Number: FR-JNJFOC-20091103378

PATIENT
  Age: 27 Year
  Sex: Female

DRUGS (3)
  1. RISPERDAL CONSTA [Suspect]
     Indication: DRUG USE FOR UNKNOWN INDICATION
     Route: 030
  2. TERCIAN [Concomitant]
     Route: 065
  3. ANXIOLYTIC [Concomitant]
     Route: 065

REACTIONS (5)
  - ARTHRALGIA [None]
  - ASTHENIA [None]
  - HOSPITALISATION [None]
  - MYALGIA [None]
  - THINKING ABNORMAL [None]
